FAERS Safety Report 9037601 (Version 1)
Quarter: 2013Q1

REPORT INFORMATION
  Report Type: Report from Study
  Country: US (occurrence: US)
  Receive Date: 20130129
  Receipt Date: 20130129
  Transmission Date: 20140127
  Serious: No
  Sender: FDA-Public Use
  Company Number: US-ABBOTT-12P-163-0891801-00

PATIENT
  Age: 82 Year
  Sex: Female

DRUGS (13)
  1. HUMIRA 40 MG/0.8 ML PEN [Suspect]
     Indication: RHEUMATOID ARTHRITIS
  2. METHOTREXATE [Concomitant]
     Indication: RHEUMATOID ARTHRITIS
     Route: 048
  3. TRIAMTERENE/HCTZ [Concomitant]
     Indication: HYPERTENSION
     Dosage: 37.5/25 MG
  4. SYNTHROID [Concomitant]
     Indication: HYPOTHYROIDISM
  5. FOLIC ACID [Concomitant]
     Indication: VITAMIN SUPPLEMENTATION
  6. LEVASTATIN [Concomitant]
     Indication: BLOOD CHOLESTEROL
     Route: 048
  7. CARDIA XT [Concomitant]
     Indication: HYPERTENSION
     Dosage: 240/24MG
     Route: 048
  8. MELATONIN [Concomitant]
     Indication: INSOMNIA
     Route: 048
  9. HYDROCODONE [Concomitant]
     Indication: PRODUCT USED FOR UNKNOWN INDICATION
     Dosage: 7.5/500MG, 1 EVERY 6 HOURS
  10. ADVAIR [Concomitant]
     Indication: CHRONIC OBSTRUCTIVE PULMONARY DISEASE
     Dosage: 250/50 DISKUS
     Route: 048
  11. ADVAIR [Concomitant]
     Indication: ASTHMA
  12. ADVAIR [Concomitant]
     Indication: BRONCHITIS
  13. MAXAIR [Concomitant]
     Indication: ASTHMA
     Dosage: AUTO INHALER
     Route: 048

REACTIONS (8)
  - Dyspnoea [Recovered/Resolved]
  - Dyspnoea [Recovered/Resolved]
  - Dyspnoea [Recovered/Resolved]
  - Cough [Recovered/Resolved]
  - Wheezing [Recovered/Resolved]
  - Injection site bruising [Recovering/Resolving]
  - Laceration [Unknown]
  - Wound infection [Unknown]
